FAERS Safety Report 8538813-7 (Version None)
Quarter: 2012Q3

REPORT INFORMATION
  Report Type: 
  Country: None (occurrence: None)
  Receive Date: 20120726
  Receipt Date: 20120717
  Transmission Date: 20120928
  Serious: No
  Sender: FDA-Public Use
  Company Number: US-ASTRAZENECA-2011SE41425

PATIENT
  Age: 51 Year
  Sex: Female

DRUGS (19)
  1. NEXIUM [Suspect]
     Route: 048
     Dates: start: 20081208
  2. NEXIUM [Suspect]
     Route: 048
     Dates: start: 20090208
  3. PRILOSEC [Concomitant]
     Dosage: ONCE A DAY
  4. METHYLPREDNISOLONE [Concomitant]
     Dates: start: 20091009
  5. AZITHROMYCIN [Concomitant]
     Dates: start: 20110221
  6. NEXIUM [Suspect]
     Route: 048
     Dates: start: 20090708
  7. BISMUTH SUBSALICYLATE [Concomitant]
  8. NEXIUM [Suspect]
     Indication: GASTROOESOPHAGEAL REFLUX DISEASE
     Route: 048
     Dates: start: 20010101, end: 20110101
  9. FAMOTIDINE [Concomitant]
     Dates: start: 20110525
  10. CALCIUM CARBONATE [Concomitant]
  11. NAPROXEN [Concomitant]
     Dates: start: 20091007
  12. METOPROLOL SUCCINATE EXTENDED RELEASE [Concomitant]
     Dates: start: 20091027
  13. AZITHROMYCIN [Concomitant]
     Dates: start: 20120424
  14. MECLIZINE [Concomitant]
     Dates: start: 20120424
  15. NEXIUM [Suspect]
     Route: 048
     Dates: start: 20100624
  16. HYDROCODON-ACETAMINOPH [Concomitant]
     Dates: start: 20091007
  17. NEXIUM [Suspect]
     Dosage: EVERYDAY
     Route: 048
     Dates: start: 20040101, end: 20110101
  18. ROLAIDS [Concomitant]
  19. ALPRAZOLAM [Concomitant]
     Dates: start: 20091027

REACTIONS (12)
  - TIBIA FRACTURE [None]
  - DEPRESSION [None]
  - PAIN [None]
  - HAND FRACTURE [None]
  - ANKLE FRACTURE [None]
  - EMOTIONAL DISTRESS [None]
  - FIBULA FRACTURE [None]
  - LOWER LIMB FRACTURE [None]
  - OSTEOPENIA [None]
  - BONE DENSITY DECREASED [None]
  - OSTEOPOROSIS [None]
  - FOOT FRACTURE [None]
